FAERS Safety Report 5542352-5 (Version None)
Quarter: 2007Q4

REPORT INFORMATION
  Report Type: 
  Country: None (occurrence: None)
  Receive Date: 20071210
  Receipt Date: 20071206
  Transmission Date: 20080405
  Serious: Yes (Death, Life-Threatening, Hospitalization)
  Sender: FDA-Public Use
  Company Number: JP-ASTRAZENECA-2007AP05139

PATIENT
  Age: 82 Year
  Sex: Female
  Weight: 54 kg

DRUGS (4)
  1. CRESTOR [Suspect]
     Indication: HYPERLIPIDAEMIA
     Route: 048
     Dates: end: 20070710
  2. MUCOSTA [Concomitant]
     Route: 048
     Dates: start: 20070704, end: 20070704
  3. CELECOX [Concomitant]
     Route: 048
     Dates: start: 20070704, end: 20070704
  4. DIOVAN [Concomitant]
     Indication: HYPERTENSION
     Route: 048
     Dates: end: 20070716

REACTIONS (4)
  - ARRHYTHMIA [None]
  - HEPATIC FAILURE [None]
  - HEPATIC FUNCTION ABNORMAL [None]
  - JAUNDICE [None]
